FAERS Safety Report 20674703 (Version 1)
Quarter: 2022Q2

REPORT INFORMATION
  Report Type: Report from Study
  Country: JP (occurrence: JP)
  Receive Date: 20220405
  Receipt Date: 20220405
  Transmission Date: 20220721
  Serious: Yes (Hospitalization)
  Sender: FDA-Public Use
  Company Number: JP-JNJFOC-A-CH2020-200687

PATIENT
  Age: 25 Year
  Sex: Male
  Weight: 55.8 kg

DRUGS (45)
  1. OPSUMIT [Suspect]
     Active Substance: MACITENTAN
     Indication: Pulmonary arterial hypertension
     Dosage: 5 MG, QD
     Route: 048
     Dates: start: 20160629
  2. BUFFERIN [Concomitant]
     Active Substance: ASPIRIN
     Indication: Embolism
     Route: 048
     Dates: start: 20100907
  3. FEBUXOSTAT [Concomitant]
     Active Substance: FEBUXOSTAT
     Indication: Gout
     Route: 048
     Dates: start: 20141118
  4. FLUTICASONE PROPIONATE\SALMETEROL XINAFOATE [Concomitant]
     Active Substance: FLUTICASONE PROPIONATE\SALMETEROL XINAFOATE
     Indication: Asthma
     Dosage: 1INHALATANT
     Route: 055
     Dates: start: 20110130
  5. LOXOPROFEN [Concomitant]
     Active Substance: LOXOPROFEN
  6. BERAPROST SODIUM [Concomitant]
     Active Substance: BERAPROST SODIUM
     Indication: Pulmonary arterial hypertension
     Route: 048
     Dates: start: 20160112, end: 20170918
  7. BERAPROST SODIUM [Concomitant]
     Active Substance: BERAPROST SODIUM
     Route: 048
     Dates: start: 20170919, end: 20180306
  8. LOXOPROFEN SODIUM [Concomitant]
     Active Substance: LOXOPROFEN SODIUM
     Indication: Back pain
     Dosage: 1TAB/TIME OF PAIN
     Route: 048
     Dates: start: 20151014, end: 20180806
  9. LOXOPROFEN SODIUM [Concomitant]
     Active Substance: LOXOPROFEN SODIUM
     Indication: Myalgia
     Route: 048
     Dates: start: 20180807
  10. LOXOPROFEN SODIUM [Concomitant]
     Active Substance: LOXOPROFEN SODIUM
     Indication: Ligament sprain
     Route: 003
     Dates: start: 20160629, end: 20161118
  11. LOXOPROFEN SODIUM [Concomitant]
     Active Substance: LOXOPROFEN SODIUM
     Dosage: DOSE UNKNOWN
     Route: 065
  12. MYSER [Concomitant]
     Indication: Hand dermatitis
     Dosage: DOSE UNKNOWN
     Route: 003
     Dates: start: 20111206
  13. MYSER [Concomitant]
     Dosage: DOSE UNKNOWN, Q.S.
     Route: 003
     Dates: start: 20111206
  14. GENTAMICIN [Concomitant]
     Active Substance: GENTAMICIN
     Indication: Skin infection
     Dosage: DOSE UNKNOWN
     Route: 003
     Dates: start: 20160629, end: 20170620
  15. GENTAMICIN [Concomitant]
     Active Substance: GENTAMICIN
     Dosage: DOSE UNKNOWN, Q.S.
     Route: 003
     Dates: start: 20180605
  16. ADCIRCA [Concomitant]
     Active Substance: TADALAFIL
     Indication: Pulmonary arterial hypertension
     Route: 048
     Dates: start: 20160927, end: 20161227
  17. ADCIRCA [Concomitant]
     Active Substance: TADALAFIL
     Route: 048
     Dates: start: 20161228, end: 20170306
  18. ADCIRCA [Concomitant]
     Active Substance: TADALAFIL
     Dosage: 1TAB/MONING 0.5TAB/EVENING
     Route: 048
     Dates: start: 20170307, end: 20170619
  19. ADCIRCA [Concomitant]
     Active Substance: TADALAFIL
     Route: 048
     Dates: start: 20170620, end: 20170918
  20. ADCIRCA [Concomitant]
     Active Substance: TADALAFIL
     Route: 048
     Dates: start: 20170919
  21. KETOPROFEN [Concomitant]
     Active Substance: KETOPROFEN
     Indication: Back pain
     Dosage: 1 SHEET
     Route: 062
     Dates: start: 20160927
  22. KETOPROFEN [Concomitant]
     Active Substance: KETOPROFEN
     Dosage: 1 SHEET
     Route: 062
     Dates: start: 20180306
  23. STICKZENOL A [Concomitant]
     Indication: Myalgia
     Dosage: DOSE UNKNOWN
     Route: 003
     Dates: start: 20160927, end: 20170619
  24. FAMOTIDINE [Concomitant]
     Active Substance: FAMOTIDINE
     Indication: Gastric ulcer
     Route: 048
     Dates: start: 20160927, end: 20170918
  25. FAMOTIDINE [Concomitant]
     Active Substance: FAMOTIDINE
     Route: 048
     Dates: start: 20170919, end: 20180806
  26. FAMOTIDINE [Concomitant]
     Active Substance: FAMOTIDINE
     Route: 048
     Dates: start: 20170807
  27. CELECOXIB [Concomitant]
     Active Substance: CELECOXIB
     Indication: Back pain
     Route: 048
     Dates: start: 20161018, end: 20161218
  28. CANDESARTAN [Concomitant]
     Active Substance: CANDESARTAN
     Indication: Cardiac failure
     Route: 048
     Dates: start: 20170919, end: 20171211
  29. CANDESARTAN [Concomitant]
     Active Substance: CANDESARTAN
     Route: 048
     Dates: start: 20171212
  30. BANAN [Concomitant]
     Active Substance: CEFPODOXIME PROXETIL
     Indication: Infection prophylaxis
     Route: 048
     Dates: start: 20170714, end: 20170716
  31. DIAZEPAM [Concomitant]
     Active Substance: DIAZEPAM
     Indication: Anxiety
     Route: 048
     Dates: start: 20170714, end: 20170714
  32. LOPERAMIDE HYDROCHLORIDE [Concomitant]
     Active Substance: LOPERAMIDE HYDROCHLORIDE
     Indication: Gastroenteritis
     Route: 048
     Dates: start: 20180605
  33. UPTRAVI [Concomitant]
     Active Substance: SELEXIPAG
     Indication: Pulmonary arterial hypertension
     Route: 048
     Dates: start: 20180313, end: 20180409
  34. UPTRAVI [Concomitant]
     Active Substance: SELEXIPAG
     Route: 048
     Dates: start: 20180410, end: 20180626
  35. UPTRAVI [Concomitant]
     Active Substance: SELEXIPAG
     Route: 048
     Dates: start: 20180627, end: 20180806
  36. UPTRAVI [Concomitant]
     Active Substance: SELEXIPAG
     Route: 048
     Dates: start: 20180807
  37. DIMEMORFAN PHOSPHATE [Concomitant]
     Active Substance: DIMEMORFAN PHOSPHATE
     Indication: Rhinitis allergic
     Route: 048
     Dates: start: 20180116, end: 20180305
  38. DIMEMORFAN PHOSPHATE [Concomitant]
     Active Substance: DIMEMORFAN PHOSPHATE
     Indication: Bronchitis chronic
     Route: 048
     Dates: start: 20180306
  39. PONSTEL [Concomitant]
     Active Substance: MEFENAMIC ACID
     Indication: Bronchitis chronic
     Route: 048
     Dates: start: 20180306
  40. PREDONINE [Concomitant]
     Active Substance: PREDNISOLONE
     Indication: Viral infection
     Route: 048
     Dates: start: 20180420, end: 20180423
  41. TAMIFLU [Concomitant]
     Active Substance: OSELTAMIVIR PHOSPHATE
     Indication: Viral infection
     Route: 048
     Dates: start: 20180419, end: 20180424
  42. NEXIUM [Concomitant]
     Active Substance: ESOMEPRAZOLE MAGNESIUM
     Indication: Gastroenteritis
     Route: 048
     Dates: start: 20180605
  43. BERBERINE\GERANIUM [Concomitant]
     Active Substance: BERBERINE\GERANIUM
     Indication: Gastroenteritis
     Route: 048
     Dates: start: 20180605
  44. DIETARY SUPPLEMENT\PROBIOTICS [Concomitant]
     Active Substance: DIETARY SUPPLEMENT\PROBIOTICS
     Indication: Gastrointestinal disorder therapy
     Route: 048
     Dates: start: 20180306, end: 20180313
  45. POVIDONE-IODINE [Concomitant]
     Active Substance: POVIDONE-IODINE
     Indication: Oral disorder
     Dosage: 2-4ML/TIME
     Route: 049
     Dates: start: 20180807

REACTIONS (13)
  - Viral infection [Unknown]
  - Nasopharyngitis [Recovered/Resolved]
  - Gastroenteritis viral [Recovered/Resolved]
  - Ligament sprain [Recovered/Resolved]
  - Bronchitis [Recovered/Resolved]
  - Bronchitis chronic [Recovered/Resolved]
  - Rhinitis allergic [Recovered/Resolved]
  - Gastroenteritis [Recovered/Resolved]
  - Palpitations [Unknown]
  - Peripheral swelling [Unknown]
  - Faeces soft [Unknown]
  - Oedema peripheral [Unknown]
  - Pulse abnormal [Unknown]

NARRATIVE: CASE EVENT DATE: 20161227
